FAERS Safety Report 15791104 (Version 1)
Quarter: 2019Q1

REPORT INFORMATION
  Report Type: Spontaneous
  Country: US (occurrence: US)
  Receive Date: 20190104
  Receipt Date: 20190104
  Transmission Date: 20190417
  Serious: No
  Sender: FDA-Public Use
  Company Number: US-BIOGEN-2018BI00676159

PATIENT
  Age: 62 Year
  Sex: Male

DRUGS (1)
  1. PLEGRIDY [Suspect]
     Active Substance: PEGINTERFERON BETA-1A
     Indication: MULTIPLE SCLEROSIS
     Route: 058
     Dates: start: 20180802

REACTIONS (4)
  - Limb discomfort [Unknown]
  - Muscle fatigue [Unknown]
  - Muscular weakness [Unknown]
  - Influenza like illness [Unknown]

NARRATIVE: CASE EVENT DATE: 20181221
